FAERS Safety Report 6575443-0 (Version None)
Quarter: 2010Q1

REPORT INFORMATION
  Report Type: 
  Country: None (occurrence: None)
  Receive Date: 20100208
  Receipt Date: 20100208
  Transmission Date: 20100710
  Serious: Yes (Other)
  Sender: FDA-Public Use
  Company Number: None

PATIENT
  Age: 79 Year
  Sex: Male
  Weight: 72.5755 kg

DRUGS (1)
  1. AVODART [Suspect]
     Indication: PROSTATOMEGALY
     Dosage: 0.5 MG 1 PER DAY MOUTH FROM AUG 09 THRU 2ND WEEK IN JAN 10
     Route: 048
     Dates: start: 20090801, end: 20100101

REACTIONS (2)
  - BLOOD PRESSURE INCREASED [None]
  - RASH PRURITIC [None]
